FAERS Safety Report 14628160 (Version 1)
Quarter: 2018Q1

REPORT INFORMATION
  Report Type: Spontaneous
  Country: US (occurrence: US)
  Receive Date: 20180312
  Receipt Date: 20180312
  Transmission Date: 20180509
  Serious: No
  Sender: FDA-Public Use
  Company Number: US-ALLERGAN-1801285US

PATIENT
  Age: 73 Year
  Sex: Female

DRUGS (3)
  1. MULTIVITAMIN [Concomitant]
     Active Substance: VITAMINS
     Indication: PRODUCT USED FOR UNKNOWN INDICATION
     Dosage: UNK
  2. ESTRACE [Suspect]
     Active Substance: ESTRADIOL
     Indication: VULVOVAGINAL DRYNESS
  3. ESTRACE [Suspect]
     Active Substance: ESTRADIOL
     Indication: LIBIDO INCREASED
     Dosage: UNK, QHS
     Route: 067
     Dates: start: 2017

REACTIONS (3)
  - Application site pruritus [Not Recovered/Not Resolved]
  - Off label use [Unknown]
  - Application site pain [Not Recovered/Not Resolved]
